FAERS Safety Report 15158833 (Version 3)
Quarter: 2018Q4

REPORT INFORMATION
  Report Type: Spontaneous
  Country: CH (occurrence: CH)
  Receive Date: 20180718
  Receipt Date: 20181109
  Transmission Date: 20190204
  Serious: Yes (Life-Threatening, Other)
  Sender: FDA-Public Use
  Company Number: PHHY2018CH047518

PATIENT
  Age: 30 Year
  Sex: Female
  Weight: 78 kg

DRUGS (1)
  1. OMEPRAZOL SANDOZ ECO [Suspect]
     Active Substance: OMEPRAZOLE
     Indication: DYSPEPSIA
     Dosage: 20 MG, UNK
     Route: 065
     Dates: end: 20180708

REACTIONS (8)
  - Vomiting [Recovered/Resolved]
  - Cervical incompetence [Unknown]
  - Feeling abnormal [Unknown]
  - Nausea [Recovered/Resolved]
  - Exposure during pregnancy [Unknown]
  - Diarrhoea [Recovered/Resolved]
  - Malaise [Unknown]
  - Drug intolerance [Unknown]
